FAERS Safety Report 8652048 (Version 2)
Quarter: 2012Q4

REPORT INFORMATION
  Report Type: 
  Country: US (occurrence: US)
  Receive Date: 20120706
  Receipt Date: 20121009
  Transmission Date: 20130627
  Serious: Yes (Hospitalization, Other)
  Sender: FDA-Public Use
  Company Number: US-PERRIGO-12US005502

PATIENT
  Age: 44 Year
  Sex: Female

DRUGS (1)
  1. PHENYLEPHRINE HYDROCHLORIDE [Suspect]
     Indication: NASAL CONGESTION
     Dosage: 20 mg, prn
     Route: 048
     Dates: start: 20120402, end: 20120602

REACTIONS (4)
  - Subarachnoid haemorrhage [Recovering/Resolving]
  - Vasospasm [Unknown]
  - Headache [Recovering/Resolving]
  - Incorrect dose administered [Unknown]
